FAERS Safety Report 18463757 (Version 3)
Quarter: 2020Q4

REPORT INFORMATION
  Report Type: Report from Study
  Country: CA (occurrence: CA)
  Receive Date: 20201104
  Receipt Date: 20201230
  Transmission Date: 20210114
  Serious: Yes (Hospitalization)
  Sender: FDA-Public Use
  Company Number: CA-FERRINGPH-2020FE05436

PATIENT
  Age: 85 Year
  Sex: Male

DRUGS (1)
  1. DEGARELIX [Suspect]
     Active Substance: DEGARELIX
     Indication: HORMONE-DEPENDENT PROSTATE CANCER
     Dosage: 80 MG, MONTHLY
     Route: 065
     Dates: start: 20200721

REACTIONS (10)
  - Illness [Unknown]
  - Pain in extremity [Unknown]
  - Fatigue [Unknown]
  - Unevaluable event [Unknown]
  - Malaise [Recovering/Resolving]
  - Diarrhoea [Recovered/Resolved]
  - Diarrhoea [Recovered/Resolved]
  - Diarrhoea [Not Recovered/Not Resolved]
  - Peripheral swelling [Unknown]
  - Diarrhoea [Recovered/Resolved]

NARRATIVE: CASE EVENT DATE: 2020
